FAERS Safety Report 5847766-1 (Version None)
Quarter: 2008Q3

REPORT INFORMATION
  Report Type: 
  Country: None (occurrence: None)
  Receive Date: 20080818
  Receipt Date: 20080812
  Transmission Date: 20090109
  Serious: Yes (Other)
  Sender: FDA-Public Use
  Company Number: US-ASTRAZENECA-2007UW22331

PATIENT
  Sex: Female

DRUGS (6)
  1. CRESTOR [Suspect]
     Indication: DYSLIPIDAEMIA
     Route: 048
     Dates: start: 20070518, end: 20070918
  2. CRESTOR [Suspect]
     Indication: BLOOD CHOLESTEROL INCREASED
     Route: 048
     Dates: start: 20070518, end: 20070918
  3. CRESTOR [Suspect]
     Route: 048
     Dates: start: 20080501, end: 20080808
  4. CRESTOR [Suspect]
     Route: 048
     Dates: start: 20080501, end: 20080808
  5. LISINOPRIL [Concomitant]
  6. CARDIAZEM [Concomitant]

REACTIONS (10)
  - ABDOMINAL PAIN UPPER [None]
  - BALANCE DISORDER [None]
  - DEAFNESS [None]
  - FATIGUE [None]
  - HEADACHE [None]
  - LIVER INJURY [None]
  - MUSCLE SPASMS [None]
  - MUSCULAR WEAKNESS [None]
  - NAUSEA [None]
  - PAIN IN EXTREMITY [None]
